FAERS Safety Report 4504442-5 (Version None)
Quarter: 2004Q4

REPORT INFORMATION
  Report Type: 
  Country: None (occurrence: None)
  Receive Date: 20041117
  Receipt Date: 20041117
  Transmission Date: 20050328
  Serious: No
  Sender: FDA-Public Use
  Company Number: None

PATIENT
  Age: 87 Year
  Sex: Female
  Weight: 60.782 kg

DRUGS (11)
  1. PHENYTOIN  E/21 100 MG MYLAN [Suspect]
     Indication: COMPLEX PARTIAL SEIZURES
     Dosage: 100 MG AST W/ 200 MG AM 200 MG Q HS [MANY YEARS OF RX]
  2. ASPIRIN [Concomitant]
  3. ENALAPRIL [Concomitant]
  4. HYDROCHLOROTHIAZIDE [Concomitant]
  5. HYDROXYUREA [Concomitant]
  6. METOPROLOL [Concomitant]
  7. DOCUSATE [Concomitant]
  8. CRANBERRY CAPS [Concomitant]
  9. CALCIUM [Concomitant]
  10. ZOLOFT [Concomitant]
  11. ZYPREXA [Concomitant]

REACTIONS (2)
  - DRUG LEVEL DECREASED [None]
  - PHARMACEUTICAL PRODUCT COMPLAINT [None]
